FAERS Safety Report 4850046-4 (Version None)
Quarter: 2005Q4

REPORT INFORMATION
  Report Type: 
  Country: None (occurrence: None)
  Receive Date: 20051209
  Receipt Date: 20051011
  Transmission Date: 20060501
  Serious: Yes (Hospitalization)
  Sender: FDA-Public Use
  Company Number: IT-ABBOTT-05P-083-0313482-00

PATIENT
  Sex: Female
  Weight: 95.5 kg

DRUGS (6)
  1. HUMIRA [Suspect]
     Indication: RHEUMATOID ARTHRITIS
     Route: 058
     Dates: start: 20050414, end: 20050920
  2. PREDNISONE [Concomitant]
     Indication: RHEUMATOID ARTHRITIS
  3. METHOTREXATE [Concomitant]
     Indication: RHEUMATOID ARTHRITIS
  4. FOLIC ACID [Concomitant]
     Indication: RHEUMATOID ARTHRITIS
  5. NATECAL D3 [Concomitant]
     Indication: DRUG USE FOR UNKNOWN INDICATION
  6. CARVEDILOL [Concomitant]
     Indication: HYPERTENSION
     Dates: start: 20050927

REACTIONS (11)
  - ANAEMIA [None]
  - AORTIC VALVE STENOSIS [None]
  - CARDIAC FAILURE [None]
  - CARDIAC FAILURE CONGESTIVE [None]
  - HEPATIC STEATOSIS [None]
  - HYPERTENSIVE CARDIOMYOPATHY [None]
  - INTERSTITIAL LUNG DISEASE [None]
  - POST THROMBOTIC SYNDROME [None]
  - RENAL FAILURE CHRONIC [None]
  - SKIN ULCER [None]
  - VASCULITIS [None]
